FAERS Safety Report 17029717 (Version 1)
Quarter: 2019Q4

REPORT INFORMATION
  Report Type: Spontaneous
  Country: GB (occurrence: GB)
  Receive Date: 20191114
  Receipt Date: 20191114
  Transmission Date: 20200122
  Serious: Yes (Other)
  Sender: FDA-Public Use
  Company Number: GB-AUROBINDO-AUR-APL-2019-072580

PATIENT
  Sex: Female

DRUGS (3)
  1. ARIPIPRAZOLE. [Suspect]
     Active Substance: ARIPIPRAZOLE
     Indication: PRODUCT USED FOR UNKNOWN INDICATION
     Dosage: 10 MILLIGRAM
     Route: 048
     Dates: start: 201901
  2. MAGNESIUM PHOSPHATE [Concomitant]
     Active Substance: MAGNESIUM PHOSPHATE, TRIBASIC, PENTAHYDRATE
     Indication: PRODUCT USED FOR UNKNOWN INDICATION
     Dosage: STOPPED ON ADMISSION TO HOSPITAL
     Route: 065
     Dates: start: 201812
  3. IODINE. [Concomitant]
     Active Substance: IODINE
     Indication: PAIN
     Dosage: STOPPED ON ADMISSION TO HOSPITAL
     Route: 065
     Dates: start: 201812

REACTIONS (5)
  - Chest pain [Unknown]
  - Eye pain [Unknown]
  - Dizziness [Unknown]
  - Angina pectoris [Unknown]
  - Headache [Unknown]

NARRATIVE: CASE EVENT DATE: 201901
